FAERS Safety Report 22149650 (Version 1)
Quarter: 2023Q1

REPORT INFORMATION
  Report Type: Spontaneous
  Country: US (occurrence: US)
  Receive Date: 20230329
  Receipt Date: 20230329
  Transmission Date: 20230418
  Serious: Yes (Hospitalization)
  Sender: FDA-Public Use
  Company Number: US-drreddys-LIT/USA/23/0162795

PATIENT
  Age: 65 Year
  Sex: Female

DRUGS (2)
  1. AMIODARONE HYDROCHLORIDE [Suspect]
     Active Substance: AMIODARONE HYDROCHLORIDE
     Indication: Tachycardia
  2. LIDOCAINE [Suspect]
     Active Substance: LIDOCAINE
     Indication: Tachycardia

REACTIONS (5)
  - Myocarditis [Recovered/Resolved]
  - Atrioventricular block complete [Recovered/Resolved]
  - Cardiac failure congestive [Recovered/Resolved]
  - Drug ineffective [Unknown]
  - Drug ineffective for unapproved indication [Unknown]
